FAERS Safety Report 15188079 (Version 1)
Quarter: 2018Q3

REPORT INFORMATION
  Report Type: Spontaneous
  Country: US (occurrence: US)
  Receive Date: 20180724
  Receipt Date: 20180724
  Transmission Date: 20181010
  Serious: Yes (Hospitalization)
  Sender: FDA-Public Use
  Company Number: US-HIKMA PHARMACEUTICALS USA INC.-US-H14001-18-05898

PATIENT
  Age: 42 Year
  Sex: Male

DRUGS (1)
  1. DEXAMETHASONE. [Suspect]
     Active Substance: DEXAMETHASONE
     Indication: ASTHMA
     Route: 048

REACTIONS (3)
  - Respiratory failure [Recovering/Resolving]
  - Strongyloidiasis [Recovering/Resolving]
  - Ileus paralytic [Recovering/Resolving]
